FAERS Safety Report 8800779 (Version 2)
Quarter: 2012Q4

REPORT INFORMATION
  Report Type: Report from Study
  Country: IL (occurrence: IL)
  Receive Date: 20120921
  Receipt Date: 20121002
  Transmission Date: 20130627
  Serious: Yes (Hospitalization, Other)
  Sender: FDA-Public Use
  Company Number: IL-CELGENEUS-082-22393-12090950

PATIENT
  Age: 67 Year
  Sex: Female
  Weight: 60 kg

DRUGS (9)
  1. ISTODAX [Suspect]
     Indication: PERIPHERAL T-CELL LYMPHOMA UNSPECIFIED
     Route: 065
     Dates: start: 20120814, end: 20120828
  2. FENTANYL [Concomitant]
     Indication: PAIN
     Route: 065
  3. CAPTOPRIL [Concomitant]
     Indication: HYPERTENSION
     Dosage: 25 Milligram
     Route: 065
  4. KALURIL [Concomitant]
     Indication: HYPERTENSION
     Dosage: 1
     Route: 065
  5. ACTIQ [Concomitant]
     Indication: PAIN MANAGEMENT
     Route: 065
     Dates: start: 20111123, end: 20120828
  6. LOSEC [Concomitant]
     Indication: DYSPEPSIA
     Dosage: 40 Milligram
     Route: 065
  7. OPTALGIN [Concomitant]
     Indication: PAIN MANAGEMENT
     Route: 065
     Dates: start: 20120620
  8. TRAMADEX [Concomitant]
     Indication: PAIN MANAGEMENT
     Dosage: 200 Milligram
     Route: 065
     Dates: start: 20120620
  9. ERNICA [Concomitant]
     Indication: HOMEOPATHY
     Route: 065

REACTIONS (4)
  - Vocal cord thickening [Recovered/Resolved]
  - Asthenia [Unknown]
  - Dyspnoea [Recovered/Resolved]
  - Pain [Unknown]
